FAERS Safety Report 5120939-1 (Version None)
Quarter: 2006Q4

REPORT INFORMATION
  Report Type: 
  Country: None (occurrence: None)
  Receive Date: 20061003
  Receipt Date: 20061003
  Transmission Date: 20070319
  Serious: Yes (Other)
  Sender: FDA-Public Use
  Company Number: None

PATIENT
  Age: 24 Year
  Sex: Female
  Weight: 61.2356 kg

DRUGS (1)
  1. SERTRALINE [Suspect]
     Indication: DEPRESSION
     Dosage: 50 MG ONCE DAILY PO
     Route: 048
     Dates: start: 20060912, end: 20061002

REACTIONS (4)
  - DEPRESSION [None]
  - PANIC ATTACK [None]
  - THERAPEUTIC RESPONSE UNEXPECTED WITH DRUG SUBSTITUTION [None]
  - VISUAL DISTURBANCE [None]
